FAERS Safety Report 6152092-X (Version None)
Quarter: 2009Q2

REPORT INFORMATION
  Report Type: 
  Country: None (occurrence: None)
  Receive Date: 20090409
  Receipt Date: 20090409
  Transmission Date: 20091009
  Serious: Yes (Other)
  Sender: FDA-Public Use
  Company Number: None

PATIENT
  Age: 37 Year
  Sex: Female
  Weight: 60.3284 kg

DRUGS (1)
  1. ZOLPIDEM TARTRATE [Suspect]
     Indication: INSOMNIA
     Dosage: 10 MG NIGHTLY PO
     Route: 048
     Dates: start: 20090112, end: 20090407

REACTIONS (2)
  - AMNESIA [None]
  - SLEEP-RELATED EATING DISORDER [None]
